FAERS Safety Report 6309605-4 (Version None)
Quarter: 2009Q3

REPORT INFORMATION
  Report Type: 
  Country: None (occurrence: None)
  Receive Date: 20090814
  Receipt Date: 20090811
  Transmission Date: 20100115
  Serious: Yes (Other)
  Sender: FDA-Public Use
  Company Number: AR-BRISTOL-MYERS SQUIBB COMPANY-14737043

PATIENT
  Age: 47 Year
  Sex: Female

DRUGS (2)
  1. ENTECAVIR [Suspect]
  2. TENOFOVIR [Suspect]

REACTIONS (1)
  - OPTIC NEURITIS [None]
